FAERS Safety Report 9950504 (Version 2)
Quarter: 2014Q1

REPORT INFORMATION
  Report Type: Report from Study
  Country: US (occurrence: US)
  Receive Date: 20140304
  Receipt Date: 20140304
  Transmission Date: 20141002
  Serious: No
  Sender: FDA-Public Use
  Company Number: US-ABBVIE-13P-163-1052383-00

PATIENT
  Age: 64 Year
  Sex: Female

DRUGS (8)
  1. HUMIRA [Suspect]
     Indication: RHEUMATOID ARTHRITIS
     Route: 058
     Dates: start: 20121220, end: 20130131
  2. HUMIRA [Suspect]
     Route: 058
     Dates: start: 20130307
  3. SULFASALAZINE [Suspect]
     Indication: ARTHRITIS
  4. SULFASALAZINE [Suspect]
     Dates: end: 201302
  5. PREDNISONE [Concomitant]
     Indication: RHEUMATOID ARTHRITIS
     Dosage: 15 MG DAILY
  6. PAXIL [Concomitant]
     Indication: DEPRESSION
     Dosage: 30 MG DAILY
  7. XANAX [Concomitant]
     Indication: ANXIETY
  8. ADVAIR [Concomitant]
     Indication: ASTHMA
     Dosage: 100/50 1 PUFF TWICE DAILY

REACTIONS (2)
  - Joint stiffness [Not Recovered/Not Resolved]
  - Joint swelling [Not Recovered/Not Resolved]
